FAERS Safety Report 18825912 (Version 1)
Quarter: 2021Q1

REPORT INFORMATION
  Report Type: Other
  Country: US (occurrence: US)
  Receive Date: 20210202
  Receipt Date: 20210202
  Transmission Date: 20210419
  Serious: Yes (Other)
  Sender: FDA-Public Use
  Company Number: US-ROCHE-2760949

PATIENT
  Age: 17 Year
  Sex: Male

DRUGS (5)
  1. ENOXAPARIN [Concomitant]
     Active Substance: ENOXAPARIN
     Indication: PRODUCT USED FOR UNKNOWN INDICATION
     Route: 058
  2. ACTILYSE [Suspect]
     Active Substance: ALTEPLASE
     Dosage: INITIATED AT TOTAL 1 MG/H DIVIDED TO BOTH CATHETER LUMENS
     Route: 042
  3. HEPARIN SODIUM. [Concomitant]
     Active Substance: HEPARIN SODIUM
     Indication: PRODUCT USED FOR UNKNOWN INDICATION
     Dosage: 100 UNITS/KG
     Route: 065
  4. ACTILYSE [Suspect]
     Active Substance: ALTEPLASE
     Indication: PULMONARY EMBOLISM
     Dosage: DOSE WAS DIVIDED INTO TWO DOSES OF .5 MG/KG WITH 8?HOUR INTERVALS, GIVEN 6 HOURS POST?CANNULATION.
     Route: 042
  5. BIVALIRUDIN. [Concomitant]
     Active Substance: BIVALIRUDIN
     Indication: PULMONARY EMBOLISM
     Dosage: 1MG/KG/H
     Route: 065

REACTIONS (4)
  - Tongue haemorrhage [Recovering/Resolving]
  - Catheter site haemorrhage [Recovering/Resolving]
  - Drug ineffective [Unknown]
  - Epistaxis [Recovering/Resolving]
